FAERS Safety Report 6859362-8 (Version None)
Quarter: 2010Q3

REPORT INFORMATION
  Report Type: 
  Country: None (occurrence: None)
  Receive Date: 20100719
  Receipt Date: 20080228
  Transmission Date: 20110219
  Serious: No
  Sender: FDA-Public Use
  Company Number: US-PFIZER INC-2008021026

PATIENT
  Sex: Female
  Weight: 69.1 kg

DRUGS (2)
  1. CHANTIX [Suspect]
     Indication: SMOKING CESSATION THERAPY
     Route: 048
     Dates: start: 20080223, end: 20080227
  2. XANAX [Concomitant]
     Route: 048

REACTIONS (6)
  - ABNORMAL DREAMS [None]
  - DISTURBANCE IN ATTENTION [None]
  - FEELING ABNORMAL [None]
  - PAIN IN EXTREMITY [None]
  - SLEEP TALKING [None]
  - THINKING ABNORMAL [None]
